FAERS Safety Report 5673230-9 (Version None)
Quarter: 2008Q1

REPORT INFORMATION
  Report Type: 
  Country: None (occurrence: None)
  Receive Date: 20080319
  Receipt Date: 20080312
  Transmission Date: 20080703
  Serious: Yes (Death, Life-Threatening)
  Sender: FDA-Public Use
  Company Number: JP-ELI_LILLY_AND_COMPANY-JP200803003526

PATIENT
  Age: 48 Year
  Sex: Male

DRUGS (1)
  1. GEMZAR [Suspect]
     Indication: BILE DUCT CANCER NON-RESECTABLE
     Dosage: 2000 MG, OTHER
     Route: 042
     Dates: start: 20051125, end: 20060106

REACTIONS (2)
  - CHOLANGITIS [None]
  - MALIGNANT NEOPLASM PROGRESSION [None]
